FAERS Safety Report 17979965 (Version 4)
Quarter: 2022Q2

REPORT INFORMATION
  Report Type: Report from Study
  Country: AU (occurrence: AU)
  Receive Date: 20200703
  Receipt Date: 20220502
  Transmission Date: 20220720
  Serious: Yes (Hospitalization)
  Sender: FDA-Public Use
  Company Number: NVSC2020AU183493

PATIENT
  Sex: Female

DRUGS (6)
  1. SANDOSTATIN LAR DEPOT [Suspect]
     Active Substance: OCTREOTIDE ACETATE
     Indication: Acromegaly
     Dosage: 20 MG FOR SEVERAL YEARS (8 YEARS)
     Route: 065
     Dates: end: 202003
  2. SANDOSTATIN LAR DEPOT [Suspect]
     Active Substance: OCTREOTIDE ACETATE
     Dosage: 10 MG
     Route: 065
     Dates: start: 20210316
  3. SANDOSTATIN LAR DEPOT [Suspect]
     Active Substance: OCTREOTIDE ACETATE
     Dosage: 10 MG
     Route: 065
     Dates: start: 20210428
  4. SANDOSTATIN LAR DEPOT [Suspect]
     Active Substance: OCTREOTIDE ACETATE
     Dosage: 10 MG (EVERY 6 WEEKS)
     Route: 030
  5. SANDOSTATIN LAR DEPOT [Suspect]
     Active Substance: OCTREOTIDE ACETATE
     Dosage: 10 MG, Q4W
     Route: 030
  6. SANDOSTATIN LAR DEPOT [Suspect]
     Active Substance: OCTREOTIDE ACETATE
     Dosage: 10 MG (EVERY 6 WEEKS)
     Route: 030

REACTIONS (20)
  - Arthralgia [Unknown]
  - Back pain [Unknown]
  - Myalgia [Unknown]
  - Abdominal pain upper [Unknown]
  - Blood growth hormone abnormal [Unknown]
  - Blood test abnormal [Unknown]
  - Breast pain [Unknown]
  - Pancreatic disorder [Unknown]
  - Pain in extremity [Unknown]
  - Gastrointestinal disorder [Not Recovered/Not Resolved]
  - Illness [Unknown]
  - Inappropriate schedule of product administration [Not Recovered/Not Resolved]
  - COVID-19 [Unknown]
  - Liver disorder [Unknown]
  - Cardiac disorder [Unknown]
  - Neoplasm [Unknown]
  - Blood glucose increased [Unknown]
  - Dyspepsia [Not Recovered/Not Resolved]
  - Gastric disorder [Unknown]
  - Nausea [Not Recovered/Not Resolved]
